FAERS Safety Report 4373448-1 (Version None)
Quarter: 2004Q2

REPORT INFORMATION
  Report Type: 
  Country: None (occurrence: None)
  Receive Date: 20040603
  Receipt Date: 20031205
  Transmission Date: 20050107
  Serious: Yes (Hospitalization)
  Sender: FDA-Public Use
  Company Number: 2001053858FI

PATIENT
  Age: 57 Year
  Sex: Male

DRUGS (6)
  1. CAMPTOSAR [Suspect]
     Indication: COLON CANCER
     Dosage: 350 MG, CYCLE 3, IV
     Route: 042
     Dates: start: 20010404, end: 20010404
  2. FLUOROURACIL [Suspect]
     Indication: COLON CANCER
     Dosage: EVERY 2 WEEKS, CYCLE 3, IV BOLUS, IV
     Route: 042
     Dates: start: 20010404, end: 20010405
  3. FLUOROURACIL [Suspect]
     Indication: COLON CANCER
     Dosage: EVERY 2 WEEKS, CYCLE 3, IV BOLUS, IV
     Route: 042
     Dates: start: 20010404, end: 20010406
  4. FOLINIC ACID (FOLINIC ACID) [Suspect]
     Indication: COLON CANCER
     Dosage: EVERY 2 WEEKS, CYCLE 3, IV
     Route: 042
     Dates: start: 20010404, end: 20010405
  5. KYTRIL [Concomitant]
  6. DECADRON [Concomitant]

REACTIONS (1)
  - PHLEBOTHROMBOSIS [None]
